FAERS Safety Report 11220190 (Version 2)
Quarter: 2015Q3

REPORT INFORMATION
  Report Type: Spontaneous
  Country: GB (occurrence: GB)
  Receive Date: 20150625
  Receipt Date: 20150716
  Transmission Date: 20151125
  Serious: Yes (Death, Congenital Anomaly, Other)
  Sender: FDA-Public Use
  Company Number: GB-GILEAD-2015-0160273

PATIENT

DRUGS (3)
  1. TRUVADA [Suspect]
     Active Substance: EMTRICITABINE\TENOFOVIR DISOPROXIL FUMARATE
     Indication: ASYMPTOMATIC HIV INFECTION
     Dosage: 1 DF, QD
     Route: 064
     Dates: start: 20140901, end: 201503
  2. DARUNAVIR [Suspect]
     Active Substance: DARUNAVIR
     Indication: ASYMPTOMATIC HIV INFECTION
     Dosage: 800 MG, QD
     Route: 064
     Dates: start: 20140901, end: 201503
  3. RITONAVIR. [Suspect]
     Active Substance: RITONAVIR
     Indication: HIV INFECTION
     Dosage: 100 MG, QD
     Route: 064
     Dates: start: 20140901, end: 201503

REACTIONS (7)
  - Stillbirth [Fatal]
  - Amniotic band syndrome [Not Recovered/Not Resolved]
  - Limb malformation [Not Recovered/Not Resolved]
  - Syndactyly [Not Recovered/Not Resolved]
  - Placental disorder [Not Recovered/Not Resolved]
  - Talipes [Not Recovered/Not Resolved]
  - Neonatal aspiration [Fatal]

NARRATIVE: CASE EVENT DATE: 201502
